FAERS Safety Report 16824033 (Version 1)
Quarter: 2019Q3

REPORT INFORMATION
  Report Type: Other
  Country: CA (occurrence: CA)
  Receive Date: 20190918
  Receipt Date: 20190918
  Transmission Date: 20191005
  Serious: Yes (Other)
  Sender: FDA-Public Use
  Company Number: CA-BECTON DICKINSON-2019BDN00319

PATIENT

DRUGS (12)
  1. CHLORHEXIDINE [Suspect]
     Active Substance: CHLORHEXIDINE
     Route: 064
  2. DICLECTIN [Suspect]
     Active Substance: DOXYLAMINE SUCCINATE\PYRIDOXINE HYDROCHLORIDE
     Route: 064
  3. INSULIN [Suspect]
     Active Substance: INSULIN NOS
     Route: 064
  4. NIFEDIPINE. [Suspect]
     Active Substance: NIFEDIPINE
     Dosage: 60 MG, 2X/DAY
     Route: 064
  5. MINERALS/VITAMINS NOS [Suspect]
     Active Substance: MINERALS\VITAMINS
     Route: 064
  6. NIFEDIPINE. [Suspect]
     Active Substance: NIFEDIPINE
     Dosage: 20 MG, 1X/DAY
     Route: 064
  7. ACETYLSALICYLIC ACID [Suspect]
     Active Substance: ASPIRIN
     Dosage: UNK
     Route: 064
  8. SILDENAFIL. [Suspect]
     Active Substance: SILDENAFIL
     Dosage: 20 MG, 3X/DAY
     Route: 064
  9. SILDENAFIL. [Suspect]
     Active Substance: SILDENAFIL
     Dosage: 20 MG, 2X/DAY
     Route: 064
  10. DEXPANTHENOL; ERGOCALCIFEROL; FOLIC ACID; NICOTINAMIDE; RIBOFLAVIN; TH [Suspect]
     Active Substance: FOLIC ACID\VITAMINS
     Dosage: UNK
     Route: 064
  11. METFORMIN [Suspect]
     Active Substance: METFORMIN HYDROCHLORIDE
     Route: 064
  12. METHYLDOPA. [Suspect]
     Active Substance: METHYLDOPA
     Route: 064

REACTIONS (2)
  - Foetal exposure during pregnancy [Unknown]
  - Premature baby [Unknown]
